FAERS Safety Report 15536122 (Version 3)
Quarter: 2018Q4

REPORT INFORMATION
  Report Type: Spontaneous
  Country: PT (occurrence: PT)
  Receive Date: 20181022
  Receipt Date: 20181231
  Transmission Date: 20190205
  Serious: Yes (Other)
  Sender: FDA-Public Use
  Company Number: PT-IPCA LABORATORIES LIMITED-IPC-2018-PT-002128

PATIENT

DRUGS (4)
  1. METFORMIN [Suspect]
     Active Substance: METFORMIN HYDROCHLORIDE
     Indication: GESTATIONAL DIABETES
     Dosage: UNK
     Route: 065
  2. INSULIN [Suspect]
     Active Substance: INSULIN NOS
     Indication: GESTATIONAL DIABETES
     Dosage: UNK
     Route: 065
  3. METYRAPONE [Suspect]
     Active Substance: METYRAPONE
     Indication: PRODUCT USED FOR UNKNOWN INDICATION
     Dosage: UNK
     Route: 065
  4. KETOCONAZOLE. [Suspect]
     Active Substance: KETOCONAZOLE
     Indication: PITUITARY TUMOUR BENIGN
     Dosage: 200 MG, QD
     Route: 065

REACTIONS (4)
  - Cortisol increased [Recovering/Resolving]
  - Cellulitis [Unknown]
  - Exposure during pregnancy [Unknown]
  - Premature rupture of membranes [Unknown]
